FAERS Safety Report 8444515-8 (Version None)
Quarter: 2012Q2

REPORT INFORMATION
  Report Type: 
  Country: None (occurrence: None)
  Receive Date: 20120618
  Receipt Date: 20120612
  Transmission Date: 20120825
  Serious: No
  Sender: FDA-Public Use
  Company Number: US-PFIZER INC-2012142158

PATIENT
  Sex: Male
  Weight: 102 kg

DRUGS (1)
  1. IBUPROFEN (ADVIL) [Suspect]
     Indication: ANALGESIC THERAPY
     Dosage: FOUR CAPSULES IN A DAY
     Route: 048
     Dates: start: 20120501, end: 20120601

REACTIONS (1)
  - ABDOMINAL DISCOMFORT [None]
